FAERS Safety Report 24715084 (Version 1)
Quarter: 2024Q4

REPORT INFORMATION
  Report Type: Spontaneous
  Country: US (occurrence: US)
  Receive Date: 20241210
  Receipt Date: 20241210
  Transmission Date: 20250115
  Serious: No
  Sender: SANDOZ
  Company Number: US-SANDOZ-SDZ2024US100789

PATIENT
  Sex: Female

DRUGS (1)
  1. ESTRADIOL [Suspect]
     Active Substance: ESTRADIOL
     Indication: Product used for unknown indication
     Dosage: 0.05 MG, 0.05MG/24H 8TTS
     Route: 065

REACTIONS (8)
  - Arthralgia [Unknown]
  - Terminal insomnia [Unknown]
  - Arthritis [Unknown]
  - Hot flush [Unknown]
  - Pruritus [Unknown]
  - Pain [Unknown]
  - Hypersensitivity [Unknown]
  - Drug ineffective [Unknown]
